FAERS Safety Report 24007910 (Version 1)
Quarter: 2024Q2

REPORT INFORMATION
  Report Type: Spontaneous
  Country: CN (occurrence: CN)
  Receive Date: 20240625
  Receipt Date: 20240625
  Transmission Date: 20240716
  Serious: Yes (Other)
  Sender: FDA-Public Use
  Company Number: CN-BEIGENE-BGN-2024-009237

PATIENT

DRUGS (5)
  1. TISLELIZUMAB [Suspect]
     Active Substance: TISLELIZUMAB
     Indication: Lung squamous cell carcinoma metastatic
     Dosage: 200 MILLIGRAM, Q3WK
     Route: 041
     Dates: start: 20240130
  2. TISLELIZUMAB [Suspect]
     Active Substance: TISLELIZUMAB
     Dosage: 200 MILLIGRAM, Q3WK
     Route: 041
     Dates: start: 20240522, end: 20240612
  3. CISPLATIN [Suspect]
     Active Substance: CISPLATIN
     Indication: Lung squamous cell carcinoma metastatic
     Dosage: 40 MILLIGRAM, D1, Q3WK
     Route: 041
     Dates: start: 20240130, end: 20240409
  4. CISPLATIN [Suspect]
     Active Substance: CISPLATIN
     Dosage: 30 MILLIGRAM, D2-3, Q3WK
     Route: 041
     Dates: start: 20240130, end: 20240409
  5. PACLITAXEL [Suspect]
     Active Substance: PACLITAXEL
     Indication: Lung squamous cell carcinoma metastatic
     Dosage: 370 MILLIGRAM, Q3WK
     Route: 041
     Dates: start: 20240130, end: 20240409

REACTIONS (3)
  - Interstitial lung disease [Unknown]
  - Vomiting [Unknown]
  - Pruritus [Unknown]

NARRATIVE: CASE EVENT DATE: 20240313
